FAERS Safety Report 12156272 (Version 2)
Quarter: 2016Q3

REPORT INFORMATION
  Report Type: Spontaneous
  Country: JP (occurrence: JP)
  Receive Date: 20160307
  Receipt Date: 20160722
  Transmission Date: 20161109
  Serious: Yes (Hospitalization, Other)
  Sender: FDA-Public Use
  Company Number: JP-GILEAD-2016-0195766

PATIENT
  Age: 47 Year
  Sex: Male

DRUGS (2)
  1. COPEGUS [Concomitant]
     Active Substance: RIBAVIRIN
  2. SOVALDI [Suspect]
     Active Substance: SOFOSBUVIR
     Indication: PRODUCT USED FOR UNKNOWN INDICATION
     Dosage: 400 MG, UNK
     Route: 048

REACTIONS (1)
  - Interstitial lung disease [Not Recovered/Not Resolved]
